FAERS Safety Report 10563504 (Version 1)
Quarter: 2014Q4

REPORT INFORMATION
  Report Type: Spontaneous
  Country: CN (occurrence: CN)
  Receive Date: 20141104
  Receipt Date: 20141104
  Transmission Date: 20150529
  Serious: Yes (Other)
  Sender: FDA-Public Use
  Company Number: CN-JNJFOC-20141016493

PATIENT
  Age: 11 Year
  Sex: Male
  Weight: 37 kg

DRUGS (3)
  1. XIAOER CHIQIAO QINGRE KELI [Concomitant]
     Indication: BRONCHITIS
     Dosage: 1 BAG
     Route: 048
     Dates: start: 20140601, end: 20140605
  2. INFANTS TYLENOL [Suspect]
     Active Substance: ACETAMINOPHEN
     Indication: PYREXIA
     Route: 048
     Dates: start: 20140601, end: 20140606
  3. FUFANG YIZHIHAO KELI [Concomitant]
     Indication: BRONCHITIS
     Dosage: 1 BAG
     Route: 048
     Dates: start: 20140601, end: 20140605

REACTIONS (3)
  - Cough [Recovering/Resolving]
  - Body temperature fluctuation [Recovering/Resolving]
  - Leukopenia [Recovering/Resolving]

NARRATIVE: CASE EVENT DATE: 20140603
